FAERS Safety Report 10510189 (Version 1)
Quarter: 2014Q4

REPORT INFORMATION
  Report Type: Spontaneous
  Country: US (occurrence: None)
  Receive Date: 20141009
  Receipt Date: 20141009
  Transmission Date: 20150528
  Serious: Yes (Life-Threatening, Hospitalization)
  Sender: FDA-Public Use
  Company Number: None

PATIENT
  Age: 61 Year
  Sex: Male
  Weight: 68.7 kg

DRUGS (2)
  1. DEXTROSE/HEPARIN [Suspect]
     Active Substance: DEXTROSE\HEPARIN
     Indication: CARDIOVASCULAR DISORDER
     Dates: start: 20130902, end: 20130910
  2. DEXTROSE/HEPARIN [Suspect]
     Active Substance: DEXTROSE\HEPARIN
     Indication: SURGERY
     Dates: start: 20130902, end: 20130910

REACTIONS (10)
  - Abdominal discomfort [None]
  - Activated partial thromboplastin time prolonged [None]
  - Arterial haemorrhage [None]
  - Retroperitoneal haemorrhage [None]
  - Abdominal mass [None]
  - Blood creatinine increased [None]
  - White blood cell count increased [None]
  - Haemoglobin decreased [None]
  - Groin pain [None]
  - Muscle haemorrhage [None]

NARRATIVE: CASE EVENT DATE: 20140910
